FAERS Safety Report 11167075 (Version 2)
Quarter: 2015Q3

REPORT INFORMATION
  Report Type: Spontaneous
  Country: JP (occurrence: JP)
  Receive Date: 20150605
  Receipt Date: 20150702
  Transmission Date: 20151125
  Serious: Yes (Hospitalization)
  Sender: FDA-Public Use
  Company Number: JP-ORION CORPORATION ORION PHARMA-ENT 2015-0882

PATIENT
  Age: 72 Year
  Sex: Female

DRUGS (13)
  1. COMTAN [Suspect]
     Active Substance: ENTACAPONE
     Route: 048
  2. MIRAPEX [Concomitant]
     Active Substance: PRAMIPEXOLE DIHYDROCHLORIDE
     Route: 065
     Dates: start: 20130729
  3. MAGMITT [Concomitant]
     Active Substance: MAGNESIUM OXIDE
     Route: 065
  4. NEODOPASTON [Concomitant]
     Active Substance: CARBIDOPA\LEVODOPA
     Route: 065
     Dates: start: 20060908
  5. BUFFERIN [Concomitant]
     Active Substance: ASPIRIN
     Route: 065
  6. GASMOTIN [Concomitant]
     Active Substance: MOSAPRIDE CITRATE
     Route: 065
  7. CELECOX [Concomitant]
     Active Substance: CELECOXIB
     Route: 065
  8. COMTAN [Suspect]
     Active Substance: ENTACAPONE
     Indication: PARKINSON^S DISEASE
     Route: 048
     Dates: start: 20110709
  9. FOLIAMIN [Concomitant]
     Active Substance: FOLIC ACID
     Route: 065
  10. THYRADIN [Concomitant]
     Active Substance: LEVOTHYROXINE
     Route: 065
  11. RHEUMATREX [Concomitant]
     Active Substance: METHOTREXATE SODIUM
     Route: 065
  12. ZOLPIDEM [Concomitant]
     Active Substance: ZOLPIDEM\ZOLPIDEM TARTRATE
     Route: 065
  13. SENNOSIDE [Concomitant]
     Active Substance: SENNOSIDES
     Route: 065

REACTIONS (4)
  - Joint dislocation [Unknown]
  - Dysphagia [Unknown]
  - Wrong technique in product usage process [Unknown]
  - Salivary hypersecretion [Unknown]
